FAERS Safety Report 21036126 (Version 1)
Quarter: 2022Q3

REPORT INFORMATION
  Report Type: Spontaneous
  Country: US (occurrence: US)
  Receive Date: 20220701
  Receipt Date: 20220701
  Transmission Date: 20221027
  Serious: No
  Sender: FDA-Public Use
  Company Number: US-THERAPEUTICSMD-2021TMD02444

PATIENT
  Age: 47 Year
  Sex: Female
  Weight: 58.503 kg

DRUGS (10)
  1. IMVEXXY [Suspect]
     Active Substance: ESTRADIOL
     Indication: Vulvovaginal dryness
     Dosage: 4 MG, 2X/WEEK
     Route: 067
     Dates: start: 20210831
  2. SODIUM [Concomitant]
     Active Substance: SODIUM
  3. MAGNESIUM CITRATE [Concomitant]
     Active Substance: MAGNESIUM CITRATE
  4. FISH OIL [Concomitant]
     Active Substance: FISH OIL
     Dosage: 1X/DAY
  5. ZINC [Concomitant]
     Active Substance: ZINC
     Dosage: UNK, 1X/DAY
  6. CALCIUM [Concomitant]
     Active Substance: CALCIUM
     Dosage: UNK, 1X/DAY
  7. ADRENAL PMG EXTRACT [Concomitant]
  8. BOVINE THYROID PMG [Concomitant]
  9. VITAMIN A [Concomitant]
     Active Substance: VITAMIN A
     Dosage: UNK, 1X/DAY
  10. VITAMIN C [Concomitant]
     Active Substance: ASCORBIC ACID
     Dosage: UNK, 1X/DAY

REACTIONS (2)
  - Insomnia [Unknown]
  - Nausea [Recovered/Resolved]

NARRATIVE: CASE EVENT DATE: 20210831
